FAERS Safety Report 18885582 (Version 1)
Quarter: 2021Q1

REPORT INFORMATION
  Report Type: Spontaneous
  Country: US (occurrence: US)
  Receive Date: 20210211
  Receipt Date: 20210211
  Transmission Date: 20210420
  Serious: Yes (Hospitalization)
  Sender: FDA-Public Use
  Company Number: None

PATIENT
  Sex: Male

DRUGS (28)
  1. REPATHA [Suspect]
     Active Substance: EVOLOCUMAB
     Indication: DYSLIPIDAEMIA
     Dosage: ?          OTHER DOSE:1 PEN;?
     Route: 058
     Dates: start: 20180310
  2. COQ10 CRANBERRY [Concomitant]
  3. GABAPENTIN. [Concomitant]
     Active Substance: GABAPENTIN
  4. HEPARIN SOD [Concomitant]
     Active Substance: HEPARIN SODIUM
  5. KETOROLAC [Concomitant]
     Active Substance: KETOROLAC TROMETHAMINE
  6. BUPROPION SR [Concomitant]
     Active Substance: BUPROPION HYDROCHLORIDE
  7. MULTIVITAMIN ADULTS [Concomitant]
  8. NITROFUR MAC [Concomitant]
     Active Substance: NITROFURANTOIN
  9. ONDANSETRON [Concomitant]
     Active Substance: ONDANSETRON
  10. REBIF REBIDOSE [Suspect]
     Active Substance: INTERFERON BETA-1A
     Indication: MULTIPLE SCLEROSIS
     Dosage: ?          OTHER DOSE:1 PEN;?
     Route: 058
     Dates: start: 20180602
  11. LOSARTAN POT [Concomitant]
     Active Substance: LOSARTAN POTASSIUM
  12. STIMULANT [Concomitant]
     Active Substance: UNSPECIFIED INGREDIENT
  13. SYMBICORT [Concomitant]
     Active Substance: BUDESONIDE\FORMOTEROL FUMARATE DIHYDRATE
  14. REPATHA [Suspect]
     Active Substance: EVOLOCUMAB
     Indication: LIPOPROTEIN ABNORMAL
     Dosage: ?          OTHER DOSE:1 PEN;?
     Route: 058
     Dates: start: 20180310
  15. REPATHA [Suspect]
     Active Substance: EVOLOCUMAB
     Indication: METABOLIC DISORDER
     Dosage: ?          OTHER DOSE:1 PEN;?
     Route: 058
     Dates: start: 20180310
  16. ALOGLIPTIN/METFORM [Concomitant]
  17. BENADRYL [Concomitant]
     Active Substance: DIPHENHYDRAMINE HYDROCHLORIDE
  18. LEVOTHYROXIN [Concomitant]
     Active Substance: LEVOTHYROXINE
  19. LYRICA [Concomitant]
     Active Substance: PREGABALIN
  20. METLATONIN [Concomitant]
  21. BUPROPION. [Concomitant]
     Active Substance: BUPROPION
  22. TRAMADOL HCL [Concomitant]
     Active Substance: TRAMADOL HYDROCHLORIDE
  23. LEVOFLOXACIN. [Concomitant]
     Active Substance: LEVOFLOXACIN
  24. ASPIRIN. [Concomitant]
     Active Substance: ASPIRIN
  25. CITALOPRAM [Concomitant]
     Active Substance: CITALOPRAM HYDROBROMIDE
  26. NASONEX [Concomitant]
     Active Substance: MOMETASONE FUROATE
  27. FENOIBRATE [Concomitant]
  28. VITAMIN D3 [Concomitant]
     Active Substance: CHOLECALCIFEROL

REACTIONS (4)
  - Cognitive disorder [None]
  - Knee arthroplasty [None]
  - Septic shock [None]
  - Therapy interrupted [None]
